FAERS Safety Report 8306175-6 (Version None)
Quarter: 2012Q2

REPORT INFORMATION
  Report Type: 
  Country: None (occurrence: None)
  Receive Date: 20120423
  Receipt Date: 20120413
  Transmission Date: 20120825
  Serious: Yes (Other)
  Sender: FDA-Public Use
  Company Number: US-CELGENEUS-163-21880-12020630

PATIENT
  Sex: Female
  Weight: 57 kg

DRUGS (6)
  1. REVLIMID [Suspect]
     Dosage: 10 MILLIGRAM
     Route: 048
     Dates: start: 20110901
  2. REVLIMID [Suspect]
     Dosage: 15-10MG
     Route: 048
     Dates: start: 20111001
  3. LOMOTIL [Concomitant]
     Dosage: 2.5 MILLIGRAM
     Route: 048
  4. REVLIMID [Suspect]
     Dosage: 5 MILLIGRAM
     Route: 048
     Dates: start: 20120201
  5. LOMOTIL [Concomitant]
  6. REVLIMID [Suspect]
     Dosage: 5 MILLIGRAM
     Route: 048
     Dates: start: 20120107, end: 20120120

REACTIONS (3)
  - NEPHROLITHIASIS [None]
  - DIARRHOEA [None]
  - RENAL CYST [None]
